FAERS Safety Report 18821995 (Version 1)
Quarter: 2021Q1

REPORT INFORMATION
  Report Type: Spontaneous
  Country: US (occurrence: US)
  Receive Date: 20210202
  Receipt Date: 20210202
  Transmission Date: 20210419
  Serious: No
  Sender: FDA-Public Use
  Company Number: US-PFIZER INC-2020438002

PATIENT
  Age: 33 Year
  Sex: Female

DRUGS (1)
  1. RAPAMUNE [Suspect]
     Active Substance: SIROLIMUS
     Dosage: 2 MG IN AM AND 1 MG IN PM (3 MG, DAILY)

REACTIONS (4)
  - Joint swelling [Unknown]
  - Weight increased [Unknown]
  - Off label use [Unknown]
  - Fluid retention [Unknown]
